FAERS Safety Report 7338298-2 (Version None)
Quarter: 2011Q1

REPORT INFORMATION
  Report Type: 
  Country: None (occurrence: None)
  Receive Date: 20110308
  Receipt Date: 20110209
  Transmission Date: 20110831
  Serious: No
  Sender: FDA-Public Use
  Company Number: US-B.I. PHARMACEUTICALS,INC./RIDGEFIELD-2010-BP-13605BP

PATIENT
  Age: 65 Year
  Sex: Female

DRUGS (11)
  1. RHYTHMOL [Concomitant]
  2. EFFEXOR [Concomitant]
  3. OXYCODONE [Concomitant]
  4. XANAX [Concomitant]
  5. PROTPTYLINE [Concomitant]
  6. EFFEXOR [Concomitant]
  7. HALOPERIDOL [Concomitant]
  8. PRILOSEC [Concomitant]
     Indication: GASTROOESOPHAGEAL REFLUX DISEASE
     Route: 048
     Dates: start: 20080101
  9. MORPHINE SULFATE [Concomitant]
  10. PRADAXA [Suspect]
     Indication: ATRIAL FIBRILLATION
     Dosage: 300 MG
     Route: 048
     Dates: start: 20101124
  11. ASPIRIN [Concomitant]

REACTIONS (3)
  - ABDOMINAL PAIN UPPER [None]
  - ARTHRALGIA [None]
  - DYSPEPSIA [None]
